FAERS Safety Report 18632891 (Version 4)
Quarter: 2021Q1

REPORT INFORMATION
  Report Type: Report from Study
  Country: US (occurrence: US)
  Receive Date: 20201218
  Receipt Date: 20210302
  Transmission Date: 20210419
  Serious: Yes (Hospitalization, Other)
  Sender: FDA-Public Use
  Company Number: US-GLAXOSMITHKLINE-US2020AMR247204

PATIENT
  Sex: Female

DRUGS (2)
  1. NIRAPARIB [Suspect]
     Active Substance: NIRAPARIB
     Indication: OVARIAN CANCER
     Dosage: 200 MG, QD (PM)
     Dates: start: 20201203, end: 20201204
  2. NIRAPARIB [Suspect]
     Active Substance: NIRAPARIB
     Dosage: 200 MG, QD (PM)
     Dates: start: 20201207

REACTIONS (12)
  - Abdominal cavity drainage [Unknown]
  - Catheter management [Unknown]
  - Insomnia [Unknown]
  - Oral pain [Unknown]
  - Abdominal pain upper [Unknown]
  - Dry mouth [Unknown]
  - Vomiting [Unknown]
  - Flatulence [Unknown]
  - Near death experience [Unknown]
  - Nausea [Recovering/Resolving]
  - Constipation [Recovering/Resolving]
  - Platelet count decreased [Unknown]
